FAERS Safety Report 6803978-1 (Version None)
Quarter: 2010Q2

REPORT INFORMATION
  Report Type: 
  Country: None (occurrence: None)
  Receive Date: 20100628
  Receipt Date: 20060310
  Transmission Date: 20101027
  Serious: No
  Sender: FDA-Public Use
  Company Number: US-PFIZER INC-2006040000

PATIENT
  Sex: Female
  Weight: 65.77 kg

DRUGS (2)
  1. COVERA-HS [Suspect]
     Indication: BLOOD PRESSURE
     Dosage: DAILY  INTERVAL:  EVERY DAY
     Route: 065
     Dates: start: 20051130
  2. ZOCOR [Concomitant]
     Route: 065

REACTIONS (1)
  - HEADACHE [None]
